FAERS Safety Report 4458050-5 (Version None)
Quarter: 2004Q3

REPORT INFORMATION
  Report Type: 
  Country: None (occurrence: None)
  Receive Date: 20040922
  Receipt Date: 20040908
  Transmission Date: 20050211
  Serious: Yes (Hospitalization)
  Sender: FDA-Public Use
  Company Number: CA_040506988

PATIENT
  Age: 27 Year
  Sex: Female

DRUGS (4)
  1. ZYPREXA [Suspect]
     Dosage: 5 MG IN THE EVENING
     Dates: start: 20010401
  2. CELEXA [Concomitant]
  3. RISPERIDONE [Concomitant]
  4. ZOLOFT [Concomitant]

REACTIONS (21)
  - ABNORMAL BEHAVIOUR [None]
  - AGGRESSION [None]
  - AGITATION [None]
  - CRYING [None]
  - DELUSION [None]
  - DEPRESSED MOOD [None]
  - DEPRESSION [None]
  - HAEMATOCRIT DECREASED [None]
  - HAEMOGLOBIN DECREASED [None]
  - INAPPROPRIATE AFFECT [None]
  - INCOHERENT [None]
  - IRRITABILITY [None]
  - MEAN CELL HAEMOGLOBIN CONCENTRATION DECREASED [None]
  - PARANOIA [None]
  - PHYSICAL ASSAULT [None]
  - PREGNANCY [None]
  - RED CELL DISTRIBUTION WIDTH INCREASED [None]
  - SCHIZOAFFECTIVE DISORDER [None]
  - SCREAMING [None]
  - THINKING ABNORMAL [None]
  - TREATMENT NONCOMPLIANCE [None]
